FAERS Safety Report 7980739-1 (Version None)
Quarter: 2011Q4

REPORT INFORMATION
  Report Type: 
  Country: None (occurrence: None)
  Receive Date: 20111214
  Receipt Date: 20111013
  Transmission Date: 20120403
  Serious: No
  Sender: FDA-Public Use
  Company Number: US-BAYER-2011-100256

PATIENT
  Age: 54 Year
  Sex: Female
  Weight: 83.9 kg

DRUGS (2)
  1. ASPIRIN [Suspect]
     Indication: ARTHRITIS
     Dosage: 2 TO 5 DAILY TABS AS NEEDED
     Route: 048
  2. ALEVE (CAPLET) [Suspect]
     Indication: ARTHRITIS
     Dosage: 2 TABS USED ONLY ONE TIME
     Route: 048
     Dates: start: 20111012, end: 20111013

REACTIONS (3)
  - NO ADVERSE EVENT [None]
  - PARAESTHESIA [None]
  - OEDEMA PERIPHERAL [None]
